FAERS Safety Report 25459239 (Version 2)
Quarter: 2025Q2

REPORT INFORMATION
  Report Type: Report from Study
  Country: CA (occurrence: CA)
  Receive Date: 20250620
  Receipt Date: 20250627
  Transmission Date: 20250717
  Serious: Yes (Disabling)
  Sender: IPSEN BIOPHARMACEUTICALS, INC.
  Company Number: CA-IPSEN Group, Research and Development-2025-14340

PATIENT
  Sex: Female

DRUGS (3)
  1. PALOVAROTENE [Suspect]
     Active Substance: PALOVAROTENE
     Indication: Fibrodysplasia ossificans progressiva
     Route: 048
     Dates: start: 2018
  2. PALOVAROTENE [Suspect]
     Active Substance: PALOVAROTENE
     Route: 048
  3. PALOVAROTENE [Suspect]
     Active Substance: PALOVAROTENE
     Route: 048
     Dates: end: 202405

REACTIONS (6)
  - Osteoporosis [Unknown]
  - Sensitive skin [Unknown]
  - Nail infection [Unknown]
  - Pruritus [Unknown]
  - Pain in extremity [Unknown]
  - Alopecia [Unknown]

NARRATIVE: CASE EVENT DATE: 20220101
